FAERS Safety Report 12428694 (Version 1)
Quarter: 2016Q2

REPORT INFORMATION
  Report Type: Spontaneous
  Country: IN (occurrence: IN)
  Receive Date: 20160602
  Receipt Date: 20160602
  Transmission Date: 20160815
  Serious: Yes (Other)
  Sender: FDA-Public Use
  Company Number: IN-WATSON-2016-10997

PATIENT
  Age: 6 Year
  Sex: Female

DRUGS (1)
  1. ACITRETIN (UNKNOWN) [Suspect]
     Active Substance: ACITRETIN
     Indication: ICHTHYOSIS
     Dosage: 25 MG, DAILY
     Route: 048

REACTIONS (1)
  - Rickets [Unknown]
